FAERS Safety Report 6719800-8 (Version None)
Quarter: 2010Q2

REPORT INFORMATION
  Report Type: 
  Country: None (occurrence: None)
  Receive Date: 20100511
  Receipt Date: 20100503
  Transmission Date: 20101027
  Serious: Yes (Hospitalization)
  Sender: FDA-Public Use
  Company Number: CA-SANOFI-AVENTIS-2010SA025731

PATIENT
  Age: 90 Year
  Sex: Male

DRUGS (4)
  1. PLAVIX [Suspect]
     Route: 048
     Dates: start: 20080404
  2. LEVOTHYROXINE SODIUM [Concomitant]
     Indication: THYROID DISORDER
     Route: 048
     Dates: start: 20070101
  3. CEFZIL [Concomitant]
     Route: 065
     Dates: start: 20100413
  4. IRON/VITAMINS NOS [Concomitant]
     Route: 065

REACTIONS (7)
  - FALL [None]
  - HYPERTENSION [None]
  - LOSS OF CONSCIOUSNESS [None]
  - OFF LABEL USE [None]
  - POST-TRAUMATIC PAIN [None]
  - SERUM FERRITIN INCREASED [None]
  - WHITE BLOOD CELL COUNT INCREASED [None]
